FAERS Safety Report 7270288-0 (Version None)
Quarter: 2011Q1

REPORT INFORMATION
  Report Type: 
  Country: None (occurrence: None)
  Receive Date: 20110125
  Receipt Date: 20110106
  Transmission Date: 20110831
  Serious: Yes (Hospitalization)
  Sender: FDA-Public Use
  Company Number: GB-021832

PATIENT
  Age: 79 Year

DRUGS (2)
  1. (CHLORAMBUCIL) [Suspect]
     Indication: CHRONIC LYMPHOCYTIC LEUKAEMIA
     Dosage: 56 MG QD
     Dates: start: 20101025
  2. ENALAPRIL MALEATE [Concomitant]

REACTIONS (7)
  - HAEMOGLOBIN DECREASED [None]
  - BLOOD CREATININE INCREASED [None]
  - PLATELET COUNT DECREASED [None]
  - MALAISE [None]
  - LETHARGY [None]
  - NEUTROPENIC INFECTION [None]
  - WHITE BLOOD CELL COUNT DECREASED [None]
